FAERS Safety Report 4380827-5 (Version None)
Quarter: 2004Q2

REPORT INFORMATION
  Report Type: 
  Country: None (occurrence: None)
  Receive Date: 20040616
  Receipt Date: 20040603
  Transmission Date: 20050107
  Serious: Yes (Death)
  Sender: FDA-Public Use
  Company Number: TNZUK200400069

PATIENT
  Age: 60 Year
  Sex: Female
  Weight: 88.9 kg

DRUGS (2)
  1. INNOHEP [Suspect]
     Indication: DEEP VENOUS THROMBOSIS PROPHYLAXIS
     Dosage: 3500 UNITS (3500 , 1 IN 1D), SUBCUTANEOUS
     Route: 058
     Dates: start: 20021113, end: 20021202
  2. METFORMIN HCL [Concomitant]

REACTIONS (1)
  - DEEP VEIN THROMBOSIS [None]
